FAERS Safety Report 8536596-8 (Version None)
Quarter: 2012Q3

REPORT INFORMATION
  Report Type: 
  Country: None (occurrence: None)
  Receive Date: 20120712
  Receipt Date: 20120705
  Transmission Date: 20120928
  Serious: Yes (Disabling, Other)
  Sender: FDA-Public Use
  Company Number: ACO_23588_2010

PATIENT
  Age: 48 Year
  Sex: Female
  Weight: 68.5 kg

DRUGS (5)
  1. ANALGESICS [Concomitant]
  2. AVONEX [Concomitant]
  3. AMPYRA [Suspect]
     Indication: GAIT DISTURBANCE
     Dosage: 10 MG, Q 12 HRS, ORAL
     Route: 048
     Dates: start: 20100424, end: 20100101
  4. AVONEX [Concomitant]
  5. ANALGESICS [Concomitant]

REACTIONS (3)
  - ABASIA [None]
  - PAIN IN EXTREMITY [None]
  - BEDRIDDEN [None]
